FAERS Safety Report 24523909 (Version 2)
Quarter: 2024Q4

REPORT INFORMATION
  Report Type: Spontaneous
  Country: US (occurrence: US)
  Receive Date: 20241018
  Receipt Date: 20241125
  Transmission Date: 20250115
  Serious: Yes (Other)
  Sender: PURDUE
  Company Number: US-PURDUE PHARMA-USA-2024-0312591

PATIENT
  Age: 63 Year
  Sex: Male

DRUGS (4)
  1. BUPRENORPHINE [Suspect]
     Active Substance: BUPRENORPHINE
     Indication: Sacroiliitis
     Dosage: 7.5 MCG/HR (1 PATCH EVERY 7 DAYS)
     Route: 062
     Dates: start: 20240612
  2. BUPRENORPHINE [Suspect]
     Active Substance: BUPRENORPHINE
     Indication: Intervertebral disc protrusion
     Dosage: 7.5 MCG/HR, WEEKLY
     Route: 062
  3. HYDROCODONE [Concomitant]
     Active Substance: HYDROCODONE
     Indication: Breakthrough pain
     Dosage: UNK
     Route: 048
  4. CEFIXIME [Concomitant]
     Active Substance: CEFIXIME
     Indication: Muscle spasms
     Dosage: UNK
     Route: 065

REACTIONS (7)
  - Application site erythema [Unknown]
  - Application site pruritus [Not Recovered/Not Resolved]
  - Application site inflammation [Unknown]
  - Application site burn [Not Recovered/Not Resolved]
  - Application site scar [Not Recovered/Not Resolved]
  - Application site rash [Not Recovered/Not Resolved]
  - Product use in unapproved indication [Unknown]

NARRATIVE: CASE EVENT DATE: 20240920
